FAERS Safety Report 21305957 (Version 1)
Quarter: 2022Q3

REPORT INFORMATION
  Report Type: Report from Study
  Country: US (occurrence: US)
  Receive Date: 20220908
  Receipt Date: 20220908
  Transmission Date: 20221027
  Serious: Yes (Hospitalization)
  Sender: FDA-Public Use
  Company Number: US-BRISTOL-MYERS SQUIBB COMPANY-2022-099386

PATIENT
  Age: 71 Year
  Sex: Male
  Weight: 68.00 kg

DRUGS (3)
  1. LENALIDOMIDE [Suspect]
     Active Substance: LENALIDOMIDE
     Indication: Follicular lymphoma
     Dosage: . THE LAST DOSE LENALIDOMIDE PRIOR THE SAE WAS TAKEN ON 10AUG2022
     Route: 048
     Dates: start: 20211013
  2. RITUXIMAB [Suspect]
     Active Substance: RITUXIMAB
     Indication: Follicular lymphoma
     Dosage: 10 MG/ML RECENT DOSE ON  06JAN2022
     Route: 042
     Dates: start: 20211014
  3. TAFASITAMAB [Suspect]
     Active Substance: TAFASITAMAB
     Indication: Follicular lymphoma
     Dosage: 40 MG / ML  THE LAST ?DOSE INCMOR00208/PLACEBO PRIOR THE SAE WAS TAKEN ON 11AUG2022.
     Route: 042
     Dates: start: 20211013

REACTIONS (1)
  - COVID-19 [Recovering/Resolving]

NARRATIVE: CASE EVENT DATE: 20220811
